FAERS Safety Report 7131666-3 (Version None)
Quarter: 2010Q4

REPORT INFORMATION
  Report Type: 
  Country: None (occurrence: None)
  Receive Date: 20101201
  Receipt Date: 20101130
  Transmission Date: 20110411
  Serious: Yes (Life-Threatening, Hospitalization)
  Sender: FDA-Public Use
  Company Number: JP-PFIZER INC-2010135516

PATIENT
  Age: 75 Year
  Sex: Male
  Weight: 63 kg

DRUGS (5)
  1. SUTENT [Suspect]
     Indication: RENAL CELL CARCINOMA
     Dosage: 50 MG, UNK
     Route: 048
     Dates: start: 20100909, end: 20101007
  2. FERROUS CITRATE [Concomitant]
     Indication: ANAEMIA
     Dosage: 100 MG, 2X/DAY
     Route: 048
     Dates: start: 20100907, end: 20101004
  3. PYDOXAL [Concomitant]
     Indication: PROPHYLAXIS
     Dosage: 40 MG, 3X/DAY
     Route: 048
     Dates: start: 20100910, end: 20101001
  4. NEOPHAGEN [Concomitant]
     Indication: HEPATIC FUNCTION ABNORMAL
     Dosage: 2 T, 3X/DAY
     Route: 048
     Dates: start: 20100923, end: 20101001
  5. MAGNESIUM OXIDE [Concomitant]
     Indication: CONSTIPATION
     Dosage: 1980 MG, 1X/DAY
     Route: 048
     Dates: start: 20100910, end: 20100930

REACTIONS (2)
  - BONE MARROW FAILURE [None]
  - GASTRIC HAEMORRHAGE [None]
